FAERS Safety Report 21376620 (Version 1)
Quarter: 2022Q3

REPORT INFORMATION
  Report Type: Spontaneous
  Country: US (occurrence: None)
  Receive Date: 20220924
  Receipt Date: 20220924
  Transmission Date: 20221027
  Serious: No
  Sender: FDA-Public Use
  Company Number: None

PATIENT
  Age: 51 Year
  Sex: Female
  Weight: 72 kg

DRUGS (1)
  1. TIGER BALM ULTRA STRENGTH [Suspect]
     Active Substance: CAMPHOR (SYNTHETIC)\MENTHOL
     Indication: Muscle strain
     Route: 061
     Dates: start: 20220921, end: 20220923

REACTIONS (3)
  - Rash papular [None]
  - Skin burning sensation [None]
  - Hyperaesthesia [None]

NARRATIVE: CASE EVENT DATE: 20220923
